FAERS Safety Report 5081317-7 (Version None)
Quarter: 2006Q3

REPORT INFORMATION
  Report Type: 
  Country: None (occurrence: None)
  Receive Date: 20060816
  Receipt Date: 20060803
  Transmission Date: 20061208
  Serious: Yes (Other)
  Sender: FDA-Public Use
  Company Number: PHBS2006BR11910

PATIENT
  Age: 46 Year
  Sex: Male
  Weight: 70 kg

DRUGS (1)
  1. VISKEN [Suspect]
     Indication: HYPERTROPHIC CARDIOMYOPATHY
     Dosage: UNK, UNK
     Route: 048

REACTIONS (5)
  - HYPOTONIA [None]
  - MUSCLE ATROPHY [None]
  - MUSCULAR WEAKNESS [None]
  - TENDONITIS [None]
  - TREMOR [None]
